FAERS Safety Report 7224838-0 (Version None)
Quarter: 2011Q1

REPORT INFORMATION
  Report Type: 
  Country: None (occurrence: None)
  Receive Date: 20110113
  Receipt Date: 20110107
  Transmission Date: 20110831
  Serious: Yes (Other)
  Sender: FDA-Public Use
  Company Number: GB-ELI_LILLY_AND_COMPANY-GB201101002172

PATIENT
  Sex: Male

DRUGS (2)
  1. LEVEMIR [Concomitant]
  2. HUMALOG [Suspect]

REACTIONS (1)
  - BLINDNESS [None]
